FAERS Safety Report 5513256-9 (Version None)
Quarter: 2007Q4

REPORT INFORMATION
  Report Type: 
  Country: None (occurrence: None)
  Receive Date: 20071112
  Receipt Date: 20071105
  Transmission Date: 20080405
  Serious: Yes (Other)
  Sender: FDA-Public Use
  Company Number: US-ELI_LILLY_AND_COMPANY-US200709004643

PATIENT
  Sex: Male
  Weight: 26.303 kg

DRUGS (2)
  1. STRATTERA [Suspect]
     Indication: ATTENTION DEFICIT/HYPERACTIVITY DISORDER
     Dosage: 40 MG, DAILY (1/D)
     Dates: start: 20070919, end: 20070919
  2. GUANFACINE HYDROCHLORIDE [Concomitant]
     Indication: PSYCHOMOTOR HYPERACTIVITY
     Dosage: 0.5 MG, 2/D
     Dates: start: 20070401

REACTIONS (9)
  - ALTERED STATE OF CONSCIOUSNESS [None]
  - AMNESIA [None]
  - EMOTIONAL DISTRESS [None]
  - GRAND MAL CONVULSION [None]
  - LOSS OF CONSCIOUSNESS [None]
  - MUSCLE TWITCHING [None]
  - SCREAMING [None]
  - SOMNOLENCE [None]
  - VOMITING [None]
